FAERS Safety Report 9156804 (Version 1)
Quarter: 2013Q1

REPORT INFORMATION
  Report Type: Spontaneous
  Country: DK (occurrence: None)
  Receive Date: 20130208
  Receipt Date: 20130208
  Transmission Date: 20140127
  Serious: Yes (Hospitalization)
  Sender: FDA-Public Use
  Company Number: 2013MA000894

PATIENT
  Age: 66 Year
  Sex: Male

DRUGS (3)
  1. FLUDARABINE PHOSPHATE [Suspect]
     Indication: CHRONIC LYMPHOCYTIC LEUKAEMIA
     Route: 048
     Dates: start: 20121012, end: 20121109
  2. CYCLOPHOSPHAMIDE [Concomitant]
  3. RITUXIMAB [Concomitant]

REACTIONS (1)
  - Cardiomyopathy [None]
